FAERS Safety Report 9271858 (Version 1)
Quarter: 2013Q2

REPORT INFORMATION
  Report Type: Report from Study
  Country: GR (occurrence: GR)
  Receive Date: 20130506
  Receipt Date: 20130506
  Transmission Date: 20140414
  Serious: Yes (Death)
  Sender: FDA-Public Use
  Company Number: GR-SANOFI-AVENTIS-2013SA045305

PATIENT
  Sex: 0

DRUGS (4)
  1. CISPLATIN [Suspect]
     Indication: ADENOCARCINOMA GASTRIC
     Dosage: AS A 2-HOUR INTRAVENOUS (IV) INFUSION
     Route: 042
  2. CAPECITABINE [Suspect]
     Indication: ADENOCARCINOMA GASTRIC
     Dosage: DIVIDED IN 2 DAILY DOSES, FROM DAYS 1-14 OF 21 DAY CYCLE
     Route: 048
  3. DOCETAXEL [Suspect]
     Indication: ADENOCARCINOMA GASTRIC
     Dosage: ON DAY 1
     Route: 042
  4. ANTIEMETICS AND ANTINAUSEANTS [Concomitant]

REACTIONS (1)
  - Cardiac arrest [Fatal]
